FAERS Safety Report 8405917-9 (Version None)
Quarter: 2012Q2

REPORT INFORMATION
  Report Type: 
  Country: None (occurrence: None)
  Receive Date: 20120604
  Receipt Date: 20120523
  Transmission Date: 20120825
  Serious: No
  Sender: FDA-Public Use
  Company Number: US-JNJFOC-20120519464

PATIENT
  Sex: Female
  Weight: 58.97 kg

DRUGS (2)
  1. OXYCODONE HYDROCHLORIDE [Concomitant]
     Indication: BREAKTHROUGH PAIN
     Route: 048
  2. FENTANYL-100 [Suspect]
     Indication: BACK PAIN
     Route: 062

REACTIONS (3)
  - PRODUCT QUALITY ISSUE [None]
  - WRONG TECHNIQUE IN DRUG USAGE PROCESS [None]
  - OEDEMA PERIPHERAL [None]
